FAERS Safety Report 11631319 (Version 1)
Quarter: 2015Q4

REPORT INFORMATION
  Report Type: Spontaneous
  Country: BR (occurrence: BR)
  Receive Date: 20151014
  Receipt Date: 20151014
  Transmission Date: 20160304
  Serious: Yes (Other)
  Sender: FDA-Public Use
  Company Number: CHPA2015BR010820

PATIENT
  Sex: Male
  Weight: 99 kg

DRUGS (3)
  1. TRILEPTAL [Suspect]
     Active Substance: OXCARBAZEPINE
     Dosage: 600 MG, UNK
     Route: 048
  2. TRIMEDAL [Suspect]
     Active Substance: TRIMETHADIONE
     Indication: PRODUCT USED FOR UNKNOWN INDICATION
     Dosage: UNK
     Route: 065
  3. TRILEPTAL [Suspect]
     Active Substance: OXCARBAZEPINE
     Indication: CEREBRAL ISCHAEMIA
     Dosage: 300 MG, QD
     Route: 048
     Dates: start: 2010

REACTIONS (1)
  - Seizure [Recovered/Resolved]
